FAERS Safety Report 7772234-X (Version None)
Quarter: 2011Q3

REPORT INFORMATION
  Report Type: 
  Country: None (occurrence: None)
  Receive Date: 20110922
  Receipt Date: 20101004
  Transmission Date: 20111222
  Serious: No
  Sender: FDA-Public Use
  Company Number: US-ASTRAZENECA-2010SE37917

PATIENT
  Age: 19349 Day
  Sex: Female
  Weight: 68 kg

DRUGS (10)
  1. SEROQUEL [Suspect]
     Indication: SEDATIVE THERAPY
     Route: 048
     Dates: start: 20070101
  2. SEROQUEL [Suspect]
     Indication: BIPOLAR DISORDER
     Route: 048
     Dates: start: 20070101
  3. SEROQUEL [Suspect]
     Route: 048
     Dates: start: 20060101
  4. KLONOPIN [Concomitant]
  5. SEROQUEL [Suspect]
     Indication: SLEEP DISORDER
     Route: 048
     Dates: start: 20070101
  6. SEROQUEL [Suspect]
     Route: 048
     Dates: start: 20060101
  7. SEROQUEL [Suspect]
     Route: 048
     Dates: start: 20060101
  8. SEROQUEL [Suspect]
     Route: 048
     Dates: start: 20060101
  9. SEROQUEL [Suspect]
     Route: 048
     Dates: start: 20060101
  10. SEROQUEL [Suspect]
     Route: 048
     Dates: start: 20060101

REACTIONS (12)
  - CARDIAC DISCOMFORT [None]
  - TREMOR [None]
  - DRUG INEFFECTIVE [None]
  - CONVULSION [None]
  - PERSECUTORY DELUSION [None]
  - MUSCLE SPASMS [None]
  - ASTHENIA [None]
  - PRESYNCOPE [None]
  - DRY MOUTH [None]
  - PALPITATIONS [None]
  - INSOMNIA [None]
  - RESPIRATORY DEPRESSION [None]
